FAERS Safety Report 23728376 (Version 1)
Quarter: 2024Q2

REPORT INFORMATION
  Report Type: Spontaneous
  Country: IT (occurrence: IT)
  Receive Date: 20240410
  Receipt Date: 20240410
  Transmission Date: 20240716
  Serious: Yes (Hospitalization, Other)
  Sender: FDA-Public Use
  Company Number: IT-VERTEX PHARMACEUTICALS-2024-005953

PATIENT
  Age: 25 Year
  Sex: Female
  Weight: 40 kg

DRUGS (24)
  1. ELEXACAFTOR\IVACAFTOR\TEZACAFTOR [Suspect]
     Active Substance: ELEXACAFTOR\IVACAFTOR\TEZACAFTOR
     Indication: Cystic fibrosis
     Dosage: 1 TAB (75 MG IVA/ 50 MG TEZA/100 MG ELEXA) IN THE MORNING
     Route: 048
     Dates: start: 202112
  2. ELEXACAFTOR\IVACAFTOR\TEZACAFTOR [Suspect]
     Active Substance: ELEXACAFTOR\IVACAFTOR\TEZACAFTOR
     Dosage: 2 TABS (75 MG IVA/ 50 MG TEZA/100 MG ELEXA) EVERYDAY
     Route: 048
  3. ELEXACAFTOR\IVACAFTOR\TEZACAFTOR [Suspect]
     Active Substance: ELEXACAFTOR\IVACAFTOR\TEZACAFTOR
     Dosage: REDUCTION OF THE DAILY DOSE TO 1 TABLET ALTERNATED TO 2 TABLETS EVERY OTHER DAY
     Route: 048
  4. ELEXACAFTOR\IVACAFTOR\TEZACAFTOR [Suspect]
     Active Substance: ELEXACAFTOR\IVACAFTOR\TEZACAFTOR
     Dosage: 1 TAB TWICE A WEEK
     Route: 048
     Dates: start: 202212
  5. ELEXACAFTOR\IVACAFTOR\TEZACAFTOR [Suspect]
     Active Substance: ELEXACAFTOR\IVACAFTOR\TEZACAFTOR
     Dosage: 1 TAB THRICE A WEEK
     Route: 048
     Dates: start: 202301
  6. ASPIRIN [Concomitant]
     Active Substance: ASPIRIN
     Dosage: 1 TAB, DAILY
  7. AMITRIPTYLINE [Concomitant]
     Active Substance: AMITRIPTYLINE
     Dosage: 3 DROPS, DAILY
  8. BECLOMETHASONE\FORMOTEROL [Concomitant]
     Active Substance: BECLOMETHASONE\FORMOTEROL
     Dosage: 100 MCG/ 6 MCG, 2 PUFFS DAILY
  9. CALCIUM CARBONATE [Concomitant]
     Active Substance: CALCIUM CARBONATE
     Dosage: 1 TAB, THRICE A DAY
  10. CHOLECALCIFEROL [Concomitant]
     Active Substance: CHOLECALCIFEROL
     Dosage: 10,000 IU/1 ML, 10 DROPS PER WEEK
  11. DOXAZOSIN [Concomitant]
     Active Substance: DOXAZOSIN MESYLATE
     Dosage: 1 TAB, TWICE A DAY
  12. HYDROXYZINE [Concomitant]
     Active Substance: HYDROXYZINE HYDROCHLORIDE
     Dosage: 1 TAB, DAILY
  13. LACIDIPINE [Concomitant]
     Active Substance: LACIDIPINE
     Dosage: 1 TAB, DAILY
  14. LANSOPRAZOLE [Concomitant]
     Active Substance: LANSOPRAZOLE
     Dosage: 1 TAB, DAILY
  15. NEBIVOLOL [Concomitant]
     Active Substance: NEBIVOLOL
     Dosage: 1 TAB, DAILY
  16. PANCRELIPASE [Concomitant]
     Active Substance: PANCRELIPASE
     Dosage: 125000 IU DAILY
  17. PREDNISOLONE [Concomitant]
     Active Substance: PREDNISOLONE
     Dosage: 12.5 MILLIGRAM, DAILY
  18. PREGABALIN [Concomitant]
     Active Substance: PREGABALIN
     Dosage: 1 TAB DAILY
  19. INSULIN NOS [Concomitant]
     Active Substance: INSULIN NOS
  20. ALBUTEROL [Concomitant]
     Active Substance: ALBUTEROL
     Dosage: 100 MCG/ PUFF, 2 PUFFS DAILY
  21. SEVELAMER [Concomitant]
     Active Substance: SEVELAMER
     Dosage: 3 TABS, THRICE A DAY
  22. SODIUM ZIRCONIUM CYCLOSILICATE [Concomitant]
     Active Substance: SODIUM ZIRCONIUM CYCLOSILICATE
     Dosage: 1 SACHET DAILY
  23. TACROLIMUS [Concomitant]
     Active Substance: TACROLIMUS
     Dosage: 1 TAB, TWICE A DAY
  24. URSODIOL [Concomitant]
     Active Substance: URSODIOL
     Dosage: 1 TAB, DAILY

REACTIONS (6)
  - Hepatitis acute [Recovering/Resolving]
  - Infective pulmonary exacerbation of cystic fibrosis [Unknown]
  - Gamma-glutamyltransferase increased [Recovering/Resolving]
  - Hypertension [Unknown]
  - Aspartate aminotransferase increased [Recovering/Resolving]
  - Alanine aminotransferase increased [Recovering/Resolving]

NARRATIVE: CASE EVENT DATE: 20220101
